FAERS Safety Report 22715896 (Version 5)
Quarter: 2023Q4

REPORT INFORMATION
  Report Type: Report from Study
  Country: BR (occurrence: BR)
  Receive Date: 20230718
  Receipt Date: 20231105
  Transmission Date: 20240110
  Serious: Yes (Other)
  Sender: FDA-Public Use
  Company Number: BR-002147023-NVSC2023BR157032

PATIENT
  Age: 58 Year
  Sex: Female
  Weight: 100 kg

DRUGS (12)
  1. KISQALI [Suspect]
     Active Substance: RIBOCICLIB
     Indication: Breast cancer female
     Dosage: UNK (IN USE)
     Route: 065
  2. KISQALI [Suspect]
     Active Substance: RIBOCICLIB
     Indication: Metastases to lung
     Dosage: 3 DOSAGE FORM, QD (4 OR 5 MONTHS AGO)
     Route: 048
  3. KISQALI [Suspect]
     Active Substance: RIBOCICLIB
     Indication: Metastases to pelvis
  4. KISQALI [Suspect]
     Active Substance: RIBOCICLIB
     Indication: Metastatic gastric cancer
  5. KISQALI [Suspect]
     Active Substance: RIBOCICLIB
     Indication: Metastases to bone
  6. LOSARTAN [Concomitant]
     Active Substance: LOSARTAN
     Indication: Hypertension
     Dosage: 2 DOSAGE FORM, BID (STARTED 9 YEARS AGO)
     Route: 048
  7. LOSARTAN [Concomitant]
     Active Substance: LOSARTAN
     Dosage: 1 DOSAGE FORM (15 YEARS AGO)
     Route: 048
  8. DULOXETINE [Concomitant]
     Active Substance: DULOXETINE
     Indication: Depression
     Dosage: 1 DOSAGE FORM, QD (STARTED 10 YEARS AGO)
     Route: 048
  9. ANASTROZOLE [Concomitant]
     Active Substance: ANASTROZOLE
     Indication: Metastases to lung
     Dosage: 1 DOSAGE FORM, QD (6 MONTH AGO)
     Route: 048
  10. ANASTROZOLE [Concomitant]
     Active Substance: ANASTROZOLE
     Indication: Metastases to pelvis
  11. ANASTROZOLE [Concomitant]
     Active Substance: ANASTROZOLE
     Indication: Metastatic gastric cancer
  12. ANASTROZOLE [Concomitant]
     Active Substance: ANASTROZOLE
     Indication: Metastases to bone

REACTIONS (13)
  - Ear pain [Recovered/Resolved]
  - Labyrinthitis [Unknown]
  - Deafness unilateral [Recovering/Resolving]
  - Decreased immune responsiveness [Not Recovered/Not Resolved]
  - Illness [Unknown]
  - Pain [Unknown]
  - Joint swelling [Recovered/Resolved]
  - Arthralgia [Recovering/Resolving]
  - Pain in extremity [Recovering/Resolving]
  - Malaise [Recovering/Resolving]
  - Peripheral swelling [Not Recovered/Not Resolved]
  - Pruritus [Recovered/Resolved]
  - Swelling [Recovered/Resolved]

NARRATIVE: CASE EVENT DATE: 20230601
